FAERS Safety Report 12780242 (Version 1)
Quarter: 2016Q3

REPORT INFORMATION
  Report Type: Spontaneous
  Country: US (occurrence: US)
  Receive Date: 20160922
  Receipt Date: 20160922
  Transmission Date: 20161109
  Serious: Yes (Other)
  Sender: FDA-Public Use
  Company Number: None

PATIENT

DRUGS (1)
  1. TALTZ [Suspect]
     Active Substance: IXEKIZUMAB
     Indication: PSORIASIS
     Dosage: TALTZ 80 MG - Q4WEEKS - SUBCUTANEOUSLY
     Route: 058
     Dates: start: 201606

REACTIONS (2)
  - Musculoskeletal stiffness [None]
  - Peripheral swelling [None]
